FAERS Safety Report 12434234 (Version 1)
Quarter: 2016Q2

REPORT INFORMATION
  Report Type: Spontaneous
  Country: US (occurrence: US)
  Receive Date: 20160603
  Receipt Date: 20160603
  Transmission Date: 20160815
  Serious: No
  Sender: FDA-Public Use
  Company Number: US-TEVA-663473USA

PATIENT
  Sex: Male

DRUGS (1)
  1. NUVIGIL [Suspect]
     Active Substance: ARMODAFINIL
     Indication: NARCOLEPSY
     Dosage: 250 MILLIGRAM DAILY;
     Route: 048
     Dates: start: 201603

REACTIONS (4)
  - Asthenia [Unknown]
  - Product substitution issue [Unknown]
  - Drug effect decreased [Unknown]
  - Somnolence [Unknown]

NARRATIVE: CASE EVENT DATE: 201603
